FAERS Safety Report 5913331-0 (Version None)
Quarter: 2008Q4

REPORT INFORMATION
  Report Type: 
  Country: None (occurrence: None)
  Receive Date: 20081009
  Receipt Date: 20080929
  Transmission Date: 20090506
  Serious: Yes (Other)
  Sender: FDA-Public Use
  Company Number: PHHY2008GB21333

PATIENT
  Sex: Male

DRUGS (2)
  1. CLOZARIL [Suspect]
     Indication: SCHIZOPHRENIA
     Dosage: 275 MG, UNK
     Dates: start: 19960301
  2. CLOZARIL [Suspect]
     Dosage: UNK
     Route: 048
     Dates: start: 20031203

REACTIONS (2)
  - ABSCESS ORAL [None]
  - PALATAL DISORDER [None]
